FAERS Safety Report 20963223 (Version 1)
Quarter: 2022Q2

REPORT INFORMATION
  Report Type: Spontaneous
  Country: US (occurrence: None)
  Receive Date: 20220615
  Receipt Date: 20220615
  Transmission Date: 20220721
  Serious: No
  Sender: FDA-Public Use
  Company Number: None

PATIENT
  Age: 57 Year
  Sex: Female
  Weight: 69.3 kg

DRUGS (2)
  1. PURE AND SIMPLE KIDS 50 [Suspect]
     Active Substance: ZINC OXIDE
     Indication: Prophylaxis against solar radiation
     Dates: start: 20220601, end: 20220602
  2. CHAMOMILE [Suspect]
     Active Substance: CHAMOMILE
     Dosage: FREQUENCY : AT BEDTIME;?OTHER ROUTE : ON SKIN;?
     Route: 061

REACTIONS (6)
  - Skin reaction [None]
  - Erythema [None]
  - Urticaria [None]
  - Swelling [None]
  - Eczema [None]
  - Rash [None]

NARRATIVE: CASE EVENT DATE: 20220601
